FAERS Safety Report 17703458 (Version 3)
Quarter: 2021Q2

REPORT INFORMATION
  Report Type: Spontaneous
  Country: US (occurrence: US)
  Receive Date: 20200424
  Receipt Date: 20210413
  Transmission Date: 20210716
  Serious: Yes (Death, Other)
  Sender: FDA-Public Use
  Company Number: US-ASTRAZENECA-2020SE53993

PATIENT
  Age: 57 Year
  Sex: Male
  Weight: 119.7 kg

DRUGS (85)
  1. HYDRALAZINE HCL [Concomitant]
     Active Substance: HYDRALAZINE HYDROCHLORIDE
     Indication: BLOOD PRESSURE ABNORMAL
  2. CARVEDILOL. [Concomitant]
     Active Substance: CARVEDILOL
     Indication: BLOOD PRESSURE ABNORMAL
  3. CARBOXYMETHYLCELLULOSE [Concomitant]
     Active Substance: CARBOXYMETHYLCELLULOSE
     Indication: DRY EYE
  4. INSULIN ASPART [Concomitant]
     Active Substance: INSULIN ASPART
     Indication: DIABETES MELLITUS
  5. MORPHINE [Concomitant]
     Active Substance: MORPHINE
  6. MOMETASONE FUROATE. [Concomitant]
     Active Substance: MOMETASONE FUROATE
  7. MAGNESIUM OXIDE. [Concomitant]
     Active Substance: MAGNESIUM OXIDE
  8. PRILOSEC [Suspect]
     Active Substance: OMEPRAZOLE MAGNESIUM
     Route: 048
     Dates: start: 1995, end: 2020
  9. AMLODIPINE BESYLATE. [Concomitant]
     Active Substance: AMLODIPINE BESYLATE
     Indication: BLOOD PRESSURE ABNORMAL
  10. CINACALCET. [Concomitant]
     Active Substance: CINACALCET
     Indication: CALCIUM DEFICIENCY
  11. OXYCODONE [Concomitant]
     Active Substance: OXYCODONE
     Indication: PAIN
  12. OXYMORPHONE [Concomitant]
     Active Substance: OXYMORPHONE
  13. AMITRIPTYLINE [Concomitant]
     Active Substance: AMITRIPTYLINE
  14. SPIRONOLACTONE. [Concomitant]
     Active Substance: SPIRONOLACTONE
  15. GADOTERIDOL [Concomitant]
     Active Substance: GADOTERIDOL
  16. DEXTROSE. [Concomitant]
     Active Substance: DEXTROSE
  17. GLUCAGON. [Concomitant]
     Active Substance: GLUCAGON
  18. HYDROMORPHONE [Concomitant]
     Active Substance: HYDROMORPHONE
  19. PRILOSEC [Suspect]
     Active Substance: OMEPRAZOLE MAGNESIUM
     Route: 048
     Dates: start: 1995, end: 2020
  20. PREDNISOLONE ACETATE. [Concomitant]
     Active Substance: PREDNISOLONE ACETATE
     Indication: INFLAMMATION
  21. LOSARTAN. [Concomitant]
     Active Substance: LOSARTAN
     Indication: BLOOD PRESSURE ABNORMAL
  22. CELECOXIB. [Concomitant]
     Active Substance: CELECOXIB
  23. CLOPIDOGREL [Concomitant]
     Active Substance: CLOPIDOGREL BISULFATE
  24. SILDENAFIL CITRATE. [Concomitant]
     Active Substance: SILDENAFIL CITRATE
  25. ACETAMINOPHEN. [Concomitant]
     Active Substance: ACETAMINOPHEN
  26. PROMETHAZINE [Concomitant]
     Active Substance: PROMETHAZINE HYDROCHLORIDE
  27. FLUTICASONE. [Concomitant]
     Active Substance: FLUTICASONE
  28. PRILOSEC [Suspect]
     Active Substance: OMEPRAZOLE MAGNESIUM
     Dosage: GENERIC
     Route: 065
  29. MECLIZINE HCL [Concomitant]
     Active Substance: MECLIZINE HYDROCHLORIDE
     Indication: VERTIGO
  30. GABAPENTIN. [Concomitant]
     Active Substance: GABAPENTIN
     Indication: PAIN
  31. CEFAZOLIN [Concomitant]
     Active Substance: CEFAZOLIN
  32. CARRAKLENZ [Concomitant]
  33. CYCLOPENTOLATE. [Concomitant]
     Active Substance: CYCLOPENTOLATE
  34. GENTAMYCIN [Concomitant]
     Active Substance: GENTAMICIN
  35. METOCLOPRAMIDE. [Concomitant]
     Active Substance: METOCLOPRAMIDE
  36. MESALAZINE [Concomitant]
     Active Substance: MESALAMINE
  37. DOCUSATE [Concomitant]
     Active Substance: DOCUSATE
  38. ISOPROPYL ALCOHOL. [Concomitant]
     Active Substance: ISOPROPYL ALCOHOL
  39. BUMETANIDE. [Concomitant]
     Active Substance: BUMETANIDE
     Indication: FLUID RETENTION
  40. DIPHENHYDRAMINE HCL [Concomitant]
     Active Substance: DIPHENHYDRAMINE HYDROCHLORIDE
     Indication: INSOMNIA
  41. MENTHOL/M?SALICYLATE [Concomitant]
     Indication: PAIN
  42. ASPIRIN. [Concomitant]
     Active Substance: ASPIRIN
  43. CHOLECALCIFEROL [Concomitant]
     Active Substance: CHOLECALCIFEROL
  44. HALOPERIDOL. [Concomitant]
     Active Substance: HALOPERIDOL
  45. BACITRACIN. [Concomitant]
     Active Substance: BACITRACIN
  46. INSULIN GLARGINE [Concomitant]
     Active Substance: INSULIN GLARGINE
     Indication: DIABETES MELLITUS
  47. POLYMYXIN/TRIMYTHOPRIME [Concomitant]
     Indication: INFECTION
  48. NYSTATIN. [Concomitant]
     Active Substance: NYSTATIN
     Indication: INFECTION
  49. APIXABAN [Concomitant]
     Active Substance: APIXABAN
  50. EPOETIN [Concomitant]
     Active Substance: ERYTHROPOIETIN
  51. WARFARIN [Concomitant]
     Active Substance: WARFARIN
  52. ERGOCALCIFEROL. [Concomitant]
     Active Substance: ERGOCALCIFEROL
  53. NALOXONE [Concomitant]
     Active Substance: NALOXONE
  54. PRILOSEC [Suspect]
     Active Substance: OMEPRAZOLE MAGNESIUM
     Route: 048
     Dates: start: 199501, end: 202001
  55. CETRIZINE HCL [Concomitant]
  56. CALCIUM ACETATE. [Concomitant]
     Active Substance: CALCIUM ACETATE
     Indication: BLOOD PHOSPHORUS DECREASED
  57. DICLOFENAC [Concomitant]
     Active Substance: DICLOFENAC
     Indication: PAIN
  58. ONDANSETRON HCL [Concomitant]
     Active Substance: ONDANSETRON HYDROCHLORIDE
     Indication: NAUSEA
  59. VANCOMYCIN [Concomitant]
     Active Substance: VANCOMYCIN
     Indication: INFECTION
  60. SIMETHICONE (DIMETHICONE) [Concomitant]
     Active Substance: DIMETHICONE
  61. ZOLPIDEM [Concomitant]
     Active Substance: ZOLPIDEM TARTRATE
  62. NOVOLIN NOS [Concomitant]
     Active Substance: INSULIN HUMAN
  63. PHYTONADIONE. [Concomitant]
     Active Substance: PHYTONADIONE
  64. CODEINE [Concomitant]
     Active Substance: CODEINE
  65. POLYETHYLENE GLYCOL [Concomitant]
     Active Substance: POLYETHYLENE GLYCOLS
  66. SEVELAMER CARBONATE. [Concomitant]
     Active Substance: SEVELAMER CARBONATE
  67. NIFEDIPINE. [Concomitant]
     Active Substance: NIFEDIPINE
  68. POVIDONE [Concomitant]
     Active Substance: POVIDONE
  69. PRILOSEC [Suspect]
     Active Substance: OMEPRAZOLE MAGNESIUM
     Dosage: GENERIC
     Route: 065
  70. HYPROMELLOSE [Concomitant]
     Active Substance: HYPROMELLOSES
     Indication: DRY EYE
  71. DOXYCYCLINE. [Concomitant]
     Active Substance: DOXYCYCLINE
  72. LORAZEPAM. [Concomitant]
     Active Substance: LORAZEPAM
  73. FENTANYL. [Concomitant]
     Active Substance: FENTANYL
  74. GEMFIBROZIL. [Concomitant]
     Active Substance: GEMFIBROZIL
  75. METFORMIN [Concomitant]
     Active Substance: METFORMIN HYDROCHLORIDE
  76. MOXIFLOXACIN. [Concomitant]
     Active Substance: MOXIFLOXACIN
  77. CEPHALEXIN. [Concomitant]
     Active Substance: CEPHALEXIN
  78. AMPICILLIN [Concomitant]
     Active Substance: AMPICILLIN
  79. FUROSEMIDE. [Concomitant]
     Active Substance: FUROSEMIDE
  80. ALBUTEROL. [Concomitant]
     Active Substance: ALBUTEROL
  81. ISOSORBIDE DINITRATE. [Concomitant]
     Active Substance: ISOSORBIDE DINITRATE
  82. CARBAMIDE PEROXIDE [Concomitant]
     Active Substance: CARBAMIDE PEROXIDE
  83. LIDOCAINE. [Concomitant]
     Active Substance: LIDOCAINE
  84. DEXMEDETOMIDINE. [Concomitant]
     Active Substance: DEXMEDETOMIDINE
  85. BISACODYL. [Concomitant]
     Active Substance: BISACODYL

REACTIONS (7)
  - End stage renal disease [Unknown]
  - Acute kidney injury [Unknown]
  - Chronic kidney disease [Unknown]
  - Renal failure [Unknown]
  - Nephrogenic anaemia [Unknown]
  - Chronic kidney disease-mineral and bone disorder [Unknown]
  - Death [Fatal]

NARRATIVE: CASE EVENT DATE: 2014
